FAERS Safety Report 17291883 (Version 1)
Quarter: 2020Q1

REPORT INFORMATION
  Report Type: Spontaneous
  Country: TW (occurrence: TW)
  Receive Date: 20200121
  Receipt Date: 20200121
  Transmission Date: 20200409
  Serious: Yes (Life-Threatening)
  Sender: FDA-Public Use
  Company Number: TW-BAYER-2019-217561

PATIENT
  Age: 37 Year
  Sex: Female

DRUGS (1)
  1. MAGNEVIST [Suspect]
     Active Substance: GADOPENTETATE DIMEGLUMINE
     Indication: MAGNETIC RESONANCE IMAGING PANCREAS
     Dosage: 9380 MG/ST
     Route: 042
     Dates: start: 20191125, end: 20191125

REACTIONS (9)
  - Abdominal pain [None]
  - Erythema [None]
  - Anaphylactic shock [None]
  - Dizziness [None]
  - Cold sweat [None]
  - Contrast media allergy [None]
  - Nausea [None]
  - Vomiting [None]
  - Loss of consciousness [None]

NARRATIVE: CASE EVENT DATE: 20191125
